FAERS Safety Report 16232297 (Version 1)
Quarter: 2019Q2

REPORT INFORMATION
  Report Type: Spontaneous
  Country: GB (occurrence: GB)
  Receive Date: 20190424
  Receipt Date: 20190424
  Transmission Date: 20190711
  Serious: Yes (Other)
  Sender: FDA-Public Use
  Company Number: PHHY2019GB088856

PATIENT
  Age: 43 Year
  Sex: Male

DRUGS (7)
  1. PAZOPANIB [Suspect]
     Active Substance: PAZOPANIB
     Dosage: 400 MG, QD (REVIEW 4 WEEKS)
     Route: 065
     Dates: start: 201608
  2. PAZOPANIB [Suspect]
     Active Substance: PAZOPANIB
     Dosage: 200 MG, UNK
     Route: 065
     Dates: start: 201608
  3. GABAPENTIN. [Concomitant]
     Active Substance: GABAPENTIN
     Indication: PROCEDURAL PAIN
     Dosage: 300 MG, UNK
     Route: 065
  4. BISOPROLOL [Concomitant]
     Active Substance: BISOPROLOL
     Indication: PROCEDURAL HYPERTENSION
     Dosage: 1.25 MG, UNK
     Route: 065
  5. PAZOPANIB [Suspect]
     Active Substance: PAZOPANIB
     Indication: RENAL CELL CARCINOMA
     Dosage: 800 MG, UNK (SUSPENDED FOR 4 WEEKS)
     Route: 065
     Dates: start: 201603, end: 201607
  6. PAZOPANIB [Suspect]
     Active Substance: PAZOPANIB
     Dosage: 600 MG, UNK
     Route: 065
     Dates: start: 201607
  7. PAZOPANIB [Suspect]
     Active Substance: PAZOPANIB
     Dosage: 200 UNK, UNK
     Route: 065

REACTIONS (27)
  - Oral pain [Unknown]
  - Fatigue [Unknown]
  - Taste disorder [Unknown]
  - Lymphadenopathy mediastinal [Unknown]
  - Toxicity to various agents [Unknown]
  - Diarrhoea [Unknown]
  - Skin depigmentation [Unknown]
  - Surgical skin tear [Unknown]
  - Weight decreased [Unknown]
  - Rash [Unknown]
  - Hepatic lesion [Unknown]
  - Metastases to lung [Unknown]
  - Asthenia [Unknown]
  - Postoperative wound infection [Recovered/Resolved]
  - Sunburn [Unknown]
  - Skin infection [Recovered/Resolved]
  - Palmar-plantar erythrodysaesthesia syndrome [Unknown]
  - Vomiting [Unknown]
  - Malignant neoplasm progression [Unknown]
  - Scar [Unknown]
  - Nausea [Unknown]
  - Metastatic renal cell carcinoma [Unknown]
  - Metastases to liver [Unknown]
  - Inflammation [Recovered/Resolved]
  - Inflammation [Unknown]
  - Decreased appetite [Unknown]
  - Nausea [Unknown]

NARRATIVE: CASE EVENT DATE: 201607
